FAERS Safety Report 24301304 (Version 3)
Quarter: 2025Q3

REPORT INFORMATION
  Report Type: Report from Study
  Country: US (occurrence: US)
  Receive Date: 20240910
  Receipt Date: 20250824
  Transmission Date: 20251020
  Serious: Yes (Other)
  Sender: TAKEDA
  Company Number: US-TAKEDA-2022TUS035691

PATIENT
  Sex: Female
  Weight: 77 kg

DRUGS (25)
  1. HUMAN IMMUNOGLOBULIN G [Suspect]
     Active Substance: HUMAN IMMUNOGLOBULIN G
     Indication: Immunodeficiency common variable
     Dosage: 16 GRAM, Q2WEEKS
  2. HUMAN IMMUNOGLOBULIN G [Suspect]
     Active Substance: HUMAN IMMUNOGLOBULIN G
     Dosage: 12 GRAM, Q2WEEKS
  3. HUMAN IMMUNOGLOBULIN G [Suspect]
     Active Substance: HUMAN IMMUNOGLOBULIN G
     Dosage: 16 GRAM, Q2WEEKS
  4. HUMAN IMMUNOGLOBULIN G [Suspect]
     Active Substance: HUMAN IMMUNOGLOBULIN G
     Dosage: 20 GRAM, Q2WEEKS
  5. CIPRO [Suspect]
     Active Substance: CIPROFLOXACIN HYDROCHLORIDE
     Indication: Product used for unknown indication
  6. CLINDAMYCIN [Suspect]
     Active Substance: CLINDAMYCIN
     Indication: Product used for unknown indication
  7. ACETAMINOPHEN [Concomitant]
     Active Substance: ACETAMINOPHEN
  8. DIPHENHYDRAMINE HYDROCHLORIDE [Concomitant]
     Active Substance: DIPHENHYDRAMINE HYDROCHLORIDE
  9. EPINEPHRINE [Concomitant]
     Active Substance: EPINEPHRINE
  10. DEXAMETHASONE [Concomitant]
     Active Substance: DEXAMETHASONE
  11. ASPIRIN [Concomitant]
     Active Substance: ASPIRIN
  12. VITAMIN C [Concomitant]
     Active Substance: ASCORBIC ACID
  13. ACYCLOVIR [Concomitant]
     Active Substance: ACYCLOVIR
  14. VITAMIN B12 [Concomitant]
     Active Substance: CYANOCOBALAMIN
  15. AMLODIPINE BESYLATE [Concomitant]
     Active Substance: AMLODIPINE BESYLATE
  16. GABAPENTIN [Concomitant]
     Active Substance: GABAPENTIN
  17. VITAMIN D3 [Concomitant]
     Active Substance: CHOLECALCIFEROL
  18. BENZONATATE [Concomitant]
     Active Substance: BENZONATATE
  19. LISINOPRIL [Concomitant]
     Active Substance: LISINOPRIL
  20. BIOTIN [Concomitant]
     Active Substance: BIOTIN
  21. Lmx [Concomitant]
  22. DARZALEX [Concomitant]
     Active Substance: DARATUMUMAB
  23. POMALYST [Concomitant]
     Active Substance: POMALIDOMIDE
  24. ZOMETA [Concomitant]
     Active Substance: ZOLEDRONIC ACID
  25. VITAMIN B [Concomitant]
     Active Substance: VITAMIN B

REACTIONS (8)
  - Neoplasm malignant [Unknown]
  - Injection site discharge [Unknown]
  - Nasopharyngitis [Unknown]
  - Inappropriate schedule of product administration [Unknown]
  - Drug hypersensitivity [Unknown]
  - Chills [Recovered/Resolved]
  - Infusion site pain [Unknown]
  - Nausea [Unknown]
